FAERS Safety Report 4357638-X (Version None)
Quarter: 2004Q2

REPORT INFORMATION
  Report Type: 
  Country: None (occurrence: None)
  Receive Date: 20040510
  Receipt Date: 20040429
  Transmission Date: 20050107
  Serious: Yes (Other)
  Sender: FDA-Public Use
  Company Number: 2004211113ES

PATIENT
  Age: 50 Year
  Sex: Male

DRUGS (3)
  1. LINEZOLID(LINEZOLID) TABLET [Suspect]
     Indication: PULMONARY TUBERCULOSIS
     Dosage: 600 MG, BID, ORAL
     Route: 048
  2. FUSIDIC ACID [Concomitant]
  3. AMIKACIN [Concomitant]

REACTIONS (2)
  - MICROCYTIC ANAEMIA [None]
  - POLYNEUROPATHY [None]
